FAERS Safety Report 18038333 (Version 4)
Quarter: 2022Q2

REPORT INFORMATION
  Report Type: Report from Study
  Country: CO (occurrence: CO)
  Receive Date: 20200717
  Receipt Date: 20220620
  Transmission Date: 20220720
  Serious: Yes (Life-Threatening, Other)
  Sender: FDA-Public Use
  Company Number: CO-NOVARTISPH-PHHY2019CO074768

PATIENT
  Sex: Female

DRUGS (9)
  1. ELTROMBOPAG OLAMINE [Suspect]
     Active Substance: ELTROMBOPAG OLAMINE
     Indication: Immune thrombocytopenia
     Dosage: 25 MG, QD
     Route: 048
  2. ELTROMBOPAG OLAMINE [Suspect]
     Active Substance: ELTROMBOPAG OLAMINE
     Indication: Thrombocytopenia
     Dosage: 50 MG, QD
     Route: 048
  3. ELTROMBOPAG OLAMINE [Suspect]
     Active Substance: ELTROMBOPAG OLAMINE
     Dosage: 50 MG, QD1 DOSE OF 50 MG QD (5 YEARS AGO)
     Route: 048
  4. ELTROMBOPAG OLAMINE [Suspect]
     Active Substance: ELTROMBOPAG OLAMINE
     Dosage: 25 MG, QD 2 DOSES OF 25 MG (6 MONTHS AGO)
     Route: 048
  5. LOSARTAN [Suspect]
     Active Substance: LOSARTAN
     Indication: Tension
     Dosage: 1 DOSE, QD (20 YEARS AGO)
     Route: 048
  6. METOPROLOL [Suspect]
     Active Substance: METOPROLOL
     Indication: Tension
     Dosage: 1 DOSE QD
     Route: 048
  7. ATORVASTATIN [Suspect]
     Active Substance: ATORVASTATIN
     Indication: Product used for unknown indication
     Dosage: 1 DOSE QD
     Route: 048
  8. AZATHIOPRINE [Concomitant]
     Active Substance: AZATHIOPRINE
     Indication: Thrombocytopenia
     Dosage: 1 DOSE, QD (2 MONTH AGO)
     Route: 048
  9. HYDROCORTISONE [Concomitant]
     Active Substance: HYDROCORTISONE
     Indication: Tension
     Dosage: 1 DOSE, QD
     Route: 048

REACTIONS (5)
  - Platelet count decreased [Unknown]
  - Haemorrhage [Unknown]
  - Drug ineffective [Unknown]
  - Thrombosis [Unknown]
  - Purpura [Unknown]
